FAERS Safety Report 5373441-6 (Version None)
Quarter: 2007Q2

REPORT INFORMATION
  Report Type: 
  Country: None (occurrence: None)
  Receive Date: 20070626
  Receipt Date: 20070626
  Transmission Date: 20071010
  Serious: Yes (Other)
  Sender: FDA-Public Use
  Company Number: None

PATIENT
  Sex: Male
  Weight: 82.5547 kg

DRUGS (2)
  1. TRASYLOL [Suspect]
     Indication: HAEMORRHAGE
     Dates: start: 20070502, end: 20070502
  2. TRASYLOL [Suspect]
     Indication: PROPHYLAXIS
     Dates: start: 20070502, end: 20070502

REACTIONS (1)
  - CEREBROVASCULAR ACCIDENT [None]
